FAERS Safety Report 20916791 (Version 3)
Quarter: 2022Q2

REPORT INFORMATION
  Report Type: Report from Study
  Country: CH (occurrence: CH)
  Receive Date: 20220605
  Receipt Date: 20220620
  Transmission Date: 20220721
  Serious: Yes (Death)
  Sender: FDA-Public Use
  Company Number: CH-ABBVIE-22K-151-4421579-00

PATIENT
  Sex: Female
  Weight: 40 kg

DRUGS (8)
  1. CARBIDOPA\LEVODOPA [Suspect]
     Active Substance: CARBIDOPA\LEVODOPA
     Indication: Parkinson^s disease
     Dosage: CRD: 3.8 ML/H; 1 CASSETTE/DAY?STRENGTH (CMP): 20 MG/ML 5 MG/ML
     Route: 050
     Dates: start: 20130308, end: 20220601
  2. CARBIDOPA\LEVODOPA [Suspect]
     Active Substance: CARBIDOPA\LEVODOPA
  3. FENTANYL [Concomitant]
     Active Substance: FENTANYL
     Indication: Pain
     Dosage: 112 MCG/H?FREQUENCY: CHANGE EVERY 3 DAYS
  4. FENTANYL [Concomitant]
     Active Substance: FENTANYL
     Indication: Dyspnoea
  5. DORMICUM [Concomitant]
     Indication: Dyspnoea
     Route: 058
  6. DORMICUM [Concomitant]
     Indication: Anxiety
  7. MORPHINE [Concomitant]
     Active Substance: MORPHINE
     Indication: Pain
     Route: 058
  8. MORPHINE [Concomitant]
     Active Substance: MORPHINE
     Indication: Dyspnoea

REACTIONS (1)
  - Parkinsonism [Fatal]
